FAERS Safety Report 25216954 (Version 1)
Quarter: 2025Q2

REPORT INFORMATION
  Report Type: Spontaneous
  Country: US (occurrence: US)
  Receive Date: 20250419
  Receipt Date: 20250419
  Transmission Date: 20250716
  Serious: Yes (Hospitalization)
  Sender: AUROBINDO
  Company Number: US-AUROBINDO-AUR-APL-2024-031987

PATIENT
  Age: 14 Year
  Sex: Female

DRUGS (2)
  1. ACYCLOVIR [Suspect]
     Active Substance: ACYCLOVIR
     Indication: Epstein-Barr virus infection
     Dosage: 400 MILLIGRAM, 3 TIMES A DAY (FOR FIVE DAYS)
     Route: 048
  2. ACYCLOVIR [Suspect]
     Active Substance: ACYCLOVIR
     Indication: Genital ulceration

REACTIONS (1)
  - Treatment failure [Unknown]
